FAERS Safety Report 8849332 (Version 1)
Quarter: 2012Q4

REPORT INFORMATION
  Report Type: Spontaneous
  Country: US (occurrence: None)
  Receive Date: 20121017
  Receipt Date: 20121017
  Transmission Date: 20130627
  Serious: Yes (Other)
  Sender: FDA-Public Use
  Company Number: None

PATIENT
  Age: 43 Year
  Sex: Female
  Weight: 74.84 kg

DRUGS (5)
  1. ZONISAMIDE [Suspect]
     Indication: MIGRAINE PROPHYLAXIS
     Route: 048
     Dates: start: 20120921, end: 20121001
  2. LEXAPRO [Concomitant]
  3. KLONOPIN [Concomitant]
  4. LIPITOR [Concomitant]
  5. CELEBREX [Concomitant]

REACTIONS (17)
  - Insomnia [None]
  - Back pain [None]
  - Dyspnoea [None]
  - Mouth ulceration [None]
  - Lip ulceration [None]
  - Pyrexia [None]
  - Lethargy [None]
  - Impaired work ability [None]
  - Fatigue [None]
  - Drug eruption [None]
  - Rash generalised [None]
  - Pharyngeal erythema [None]
  - Pharyngeal disorder [None]
  - Eye pain [None]
  - Abnormal sensation in eye [None]
  - Eye pain [None]
  - Dry eye [None]
